FAERS Safety Report 9365134 (Version 1)
Quarter: 2013Q2

REPORT INFORMATION
  Report Type: Spontaneous
  Country: GB (occurrence: GB)
  Receive Date: 20130624
  Receipt Date: 20130624
  Transmission Date: 20140414
  Serious: Yes (Hospitalization)
  Sender: FDA-Public Use
  Company Number: PHHY2013GB060998

PATIENT
  Sex: 0

DRUGS (6)
  1. RIFAMPICIN [Suspect]
     Indication: TUBERCULOSIS
     Dosage: 450 MG, TID
     Route: 048
     Dates: start: 20130524, end: 20130527
  2. FLUCLOXACILLIN [Suspect]
     Indication: STAPHYLOCOCCAL ABSCESS
     Dosage: 1 G, QID
     Route: 042
     Dates: start: 20130524, end: 20130527
  3. AMLODIPINE [Concomitant]
  4. RANITIDINE [Concomitant]
  5. ETHAMBUTOL [Concomitant]
  6. PYRAZINAMIDE [Concomitant]

REACTIONS (1)
  - Acute hepatic failure [Recovering/Resolving]
